FAERS Safety Report 14918609 (Version 1)
Quarter: 2018Q2

REPORT INFORMATION
  Report Type: Spontaneous
  Country: JP (occurrence: JP)
  Receive Date: 20180521
  Receipt Date: 20180521
  Transmission Date: 20180711
  Serious: Yes (Other)
  Sender: FDA-Public Use
  Company Number: JP-PFIZER INC-2018165614

PATIENT
  Age: 74 Year
  Sex: Male

DRUGS (1)
  1. XALKORI [Suspect]
     Active Substance: CRIZOTINIB
     Indication: NON-SMALL CELL LUNG CANCER
     Dosage: 500 MG, DAILY
     Route: 048
     Dates: start: 20180412

REACTIONS (8)
  - Oral dysaesthesia [Recovering/Resolving]
  - Dysphagia [Recovering/Resolving]
  - Blood potassium increased [Recovering/Resolving]
  - Constipation [Recovering/Resolving]
  - Dysgeusia [Recovering/Resolving]
  - Abdominal pain upper [Recovering/Resolving]
  - Renal impairment [Recovering/Resolving]
  - Blood creatinine increased [Unknown]
